FAERS Safety Report 9155357 (Version 1)
Quarter: 2013Q1

REPORT INFORMATION
  Report Type: Spontaneous
  Country: US (occurrence: US)
  Receive Date: 20130311
  Receipt Date: 20130311
  Transmission Date: 20140127
  Serious: Yes (Other)
  Sender: FDA-Public Use
  Company Number: US-ROCHE-649887

PATIENT
  Age: 16 Year
  Sex: Female
  Weight: 49 kg

DRUGS (4)
  1. ACCUTANE [Suspect]
     Indication: ACNE
     Route: 048
  2. ACCUTANE [Suspect]
     Dosage: 20 MG IN MORNING AND 40 MG AT NIGHT; DOSE INCREASED
     Route: 048
     Dates: start: 19940422, end: 19940918
  3. ACCUTANE [Suspect]
     Route: 048
  4. ACCUTANE [Suspect]
     Dosage: DOSE INCREASED
     Route: 048
     Dates: start: 20000228, end: 200007

REACTIONS (11)
  - Proctitis ulcerative [Unknown]
  - Inflammatory bowel disease [Unknown]
  - Irritable bowel syndrome [Unknown]
  - Depression [Unknown]
  - Night blindness [Unknown]
  - Alopecia [Unknown]
  - Oral herpes [Unknown]
  - Lymphocyte count increased [Recovered/Resolved]
  - Blood lactate dehydrogenase decreased [Recovered/Resolved]
  - Alanine aminotransferase decreased [Recovered/Resolved]
  - Blood cholesterol increased [Recovered/Resolved]
